FAERS Safety Report 8424153-3 (Version None)
Quarter: 2012Q2

REPORT INFORMATION
  Report Type: 
  Country: None (occurrence: None)
  Receive Date: 20120608
  Receipt Date: 20120217
  Transmission Date: 20120825
  Serious: No
  Sender: FDA-Public Use
  Company Number: US-ASTRAZENECA-2012SE11483

PATIENT
  Sex: Female

DRUGS (2)
  1. PULMICORT [Suspect]
     Indication: ASTHMA
     Route: 055
  2. ALBUTEROL [Concomitant]
     Indication: ASTHMA

REACTIONS (3)
  - RASH ERYTHEMATOUS [None]
  - OFF LABEL USE [None]
  - RASH [None]
